FAERS Safety Report 5860618-6 (Version None)
Quarter: 2008Q3

REPORT INFORMATION
  Report Type: 
  Country: None (occurrence: None)
  Receive Date: 20080827
  Receipt Date: 20071101
  Transmission Date: 20090109
  Serious: No
  Sender: FDA-Public Use
  Company Number: US-ABBOTT-07P-163-0422591-00

PATIENT
  Sex: Male

DRUGS (2)
  1. NIASPAN [Suspect]
     Indication: BLOOD CHOLESTEROL
     Dosage: ORANGE
     Route: 048
     Dates: start: 20070401, end: 20071029
  2. NIASPAN [Suspect]
     Dosage: ORANGE
     Route: 048
     Dates: start: 20071029

REACTIONS (3)
  - FLUSHING [None]
  - PRURITUS [None]
  - RASH [None]
